FAERS Safety Report 4689273-8 (Version None)
Quarter: 2005Q2

REPORT INFORMATION
  Report Type: 
  Country: None (occurrence: None)
  Receive Date: 20050613
  Receipt Date: 20050310
  Transmission Date: 20051028
  Serious: Yes (Hospitalization, Disabling)
  Sender: FDA-Public Use
  Company Number: US-MERCK-0503USA02362

PATIENT
  Age: 48 Year
  Sex: Female
  Weight: 68 kg

DRUGS (2)
  1. VIOXX [Suspect]
     Indication: ARTHRALGIA
     Route: 048
     Dates: start: 20040309, end: 20040301
  2. IMITREX [Concomitant]
     Route: 065

REACTIONS (20)
  - ACUTE MYOCARDIAL INFARCTION [None]
  - ANXIETY [None]
  - ARTHRALGIA [None]
  - BLOOD GLUCOSE INCREASED [None]
  - BLOOD PRESSURE INCREASED [None]
  - CORONARY ARTERY DISEASE [None]
  - DEPRESSION [None]
  - FEELING ABNORMAL [None]
  - HOMOCYSTINURIA [None]
  - INSOMNIA [None]
  - IRRITABLE BOWEL SYNDROME [None]
  - MENISCUS LESION [None]
  - MIGRAINE [None]
  - NEUROPATHY PERIPHERAL [None]
  - PAIN [None]
  - PANIC DISORDER [None]
  - SELF-MEDICATION [None]
  - TOOTHACHE [None]
  - VASOSPASM [None]
  - VENTRICULAR HYPOKINESIA [None]
